FAERS Safety Report 8445313-1 (Version None)
Quarter: 2012Q2

REPORT INFORMATION
  Report Type: 
  Country: None (occurrence: None)
  Receive Date: 20120618
  Receipt Date: 20120614
  Transmission Date: 20120825
  Serious: Yes (Death, Other)
  Sender: FDA-Public Use
  Company Number: US-JNJFOC-20120402012

PATIENT

DRUGS (5)
  1. PEGFILGRASTIM [Suspect]
     Indication: TRANSITIONAL CELL CARCINOMA
     Route: 058
  2. DOXORUBICIN HCL [Suspect]
     Route: 065
  3. PACLITAXEL [Suspect]
     Indication: TRANSITIONAL CELL CARCINOMA
     Route: 065
  4. GEMCITABINE [Suspect]
     Indication: TRANSITIONAL CELL CARCINOMA
     Route: 065
  5. DOXORUBICIN HCL [Suspect]
     Indication: TRANSITIONAL CELL CARCINOMA
     Route: 042

REACTIONS (4)
  - NEUTROPENIA [None]
  - THROMBOCYTOPENIA [None]
  - ANAEMIA [None]
  - TRANSITIONAL CELL CARCINOMA [None]
